FAERS Safety Report 4976962-0 (Version None)
Quarter: 2006Q2

REPORT INFORMATION
  Report Type: 
  Country: None (occurrence: None)
  Receive Date: 20060412
  Receipt Date: 20060327
  Transmission Date: 20061013
  Serious: Yes (Hospitalization)
  Sender: FDA-Public Use
  Company Number: US017224

PATIENT
  Age: 46 Year
  Sex: Female

DRUGS (1)
  1. ACTIQ [Suspect]
     Dates: start: 20040706, end: 20040706

REACTIONS (3)
  - HYPOTENSION [None]
  - SUICIDE ATTEMPT [None]
  - TACHYCARDIA [None]
